FAERS Safety Report 10256318 (Version 2)
Quarter: 2014Q2

REPORT INFORMATION
  Report Type: Report from Study
  Country: JP (occurrence: JP)
  Receive Date: 20140624
  Receipt Date: 20140624
  Transmission Date: 20141212
  Serious: Yes (Hospitalization)
  Sender: FDA-Public Use
  Company Number: JP-JNJFOC-20121001864

PATIENT
  Age: 77 Year
  Sex: Male
  Weight: 68 kg

DRUGS (8)
  1. XARELTO [Suspect]
     Indication: CEREBROVASCULAR ACCIDENT PROPHYLAXIS
     Route: 048
     Dates: start: 20120912
  2. XARELTO [Suspect]
     Indication: ATRIAL FIBRILLATION
     Route: 048
     Dates: start: 20120912
  3. GASLON N [Concomitant]
     Route: 048
     Dates: start: 20120818
  4. ZYLORIC [Concomitant]
     Route: 048
     Dates: start: 20120818
  5. URALYT [Concomitant]
     Route: 048
     Dates: start: 20120818
  6. HALCION [Concomitant]
     Route: 048
     Dates: start: 20120818
  7. MICARDIS [Concomitant]
     Indication: HYPERTENSION
     Route: 048
     Dates: start: 20120915
  8. ADALAT CR [Concomitant]
     Route: 048
     Dates: start: 20120915

REACTIONS (1)
  - Cerebral infarction [Recovered/Resolved]
